FAERS Safety Report 7971244-7 (Version None)
Quarter: 2011Q4

REPORT INFORMATION
  Report Type: 
  Country: None (occurrence: None)
  Receive Date: 20111212
  Receipt Date: 20111201
  Transmission Date: 20120403
  Serious: Yes (Death)
  Sender: FDA-Public Use
  Company Number: CA-PFIZER INC-2009199980

PATIENT
  Age: 83 Year
  Sex: Female

DRUGS (20)
  1. IBUPROFEN [Suspect]
     Dosage: UNK
  2. GLYCERIN [Suspect]
     Dosage: UNK
  3. LIPITOR [Suspect]
     Dosage: UNK
  4. NIFEDIPINE [Suspect]
     Dosage: UNK
  5. TYLENOL W/ CODEINE NO. 2 [Suspect]
     Dosage: UNK
  6. HYDROCHLOROTHIAZIDE [Suspect]
     Dosage: UNK
  7. PLAVIX [Suspect]
     Dosage: UNK
  8. SERTRALINE HYDROCHLORIDE [Suspect]
     Dosage: UNK
  9. QUININE [Suspect]
     Dosage: UNK
  10. ALTACE [Suspect]
     Dosage: UNK
  11. ALLOPURINOL [Suspect]
     Dosage: UNK
  12. ROBAXACET [Suspect]
     Dosage: UNK
  13. METOPROLOL [Suspect]
     Dosage: UNK
  14. ASPIRIN [Suspect]
     Dosage: UNK
  15. MOTRIN IB [Suspect]
     Dosage: UNK
  16. TEMAZEPAM [Suspect]
     Dosage: UNK
  17. TERAZOSIN HCL [Suspect]
     Dosage: UNK
  18. TYLENOL W/ CODEINE NO. 3 [Suspect]
     Dosage: UNK
  19. BETASERON [Suspect]
     Dosage: UNK
     Route: 058
  20. LACTULOSE [Suspect]
     Dosage: UNK

REACTIONS (6)
  - MUSCULOSKELETAL STIFFNESS [None]
  - PANCREATIC CARCINOMA [None]
  - MALAISE [None]
  - JAUNDICE [None]
  - BACK PAIN [None]
  - ABDOMINAL PAIN [None]
